FAERS Safety Report 7288981-2 (Version None)
Quarter: 2011Q1

REPORT INFORMATION
  Report Type: 
  Country: None (occurrence: None)
  Receive Date: 20110211
  Receipt Date: 20110203
  Transmission Date: 20110831
  Serious: Yes (Death, Other)
  Sender: FDA-Public Use
  Company Number: NL-BAXTER-2011BH000607

PATIENT
  Age: 81 Year
  Sex: Male

DRUGS (2)
  1. EXTRANEAL [Suspect]
     Indication: PRODUCT USED FOR UNKNOWN INDICATION
     Route: 033
  2. DIANEAL [Suspect]
     Indication: PRODUCT USED FOR UNKNOWN INDICATION
     Route: 033

REACTIONS (2)
  - PERITONITIS [None]
  - DEATH [None]
